FAERS Safety Report 17540975 (Version 1)
Quarter: 2020Q1

REPORT INFORMATION
  Report Type: Spontaneous
  Country: US (occurrence: US)
  Receive Date: 20200313
  Receipt Date: 20200313
  Transmission Date: 20200409
  Serious: No
  Sender: FDA-Public Use
  Company Number: US-BAUSCH-BL-2020-006273

PATIENT
  Sex: Male

DRUGS (1)
  1. JUBLIA [Suspect]
     Active Substance: EFINACONAZOLE
     Indication: PRODUCT USED FOR UNKNOWN INDICATION
     Dosage: HAD BEEN USING FOR 2-3 YEARS NOW
     Route: 061

REACTIONS (3)
  - Product quality issue [Unknown]
  - Product physical consistency issue [Unknown]
  - Drug ineffective [Unknown]
